FAERS Safety Report 18030641 (Version 6)
Quarter: 2021Q3

REPORT INFORMATION
  Report Type: Report from Study
  Country: US (occurrence: US)
  Receive Date: 20200715
  Receipt Date: 20210922
  Transmission Date: 20211014
  Serious: Yes (Other)
  Sender: FDA-Public Use
  Company Number: NVSC2020US198465

PATIENT
  Age: 1 Year
  Sex: Male

DRUGS (1)
  1. ZOLGENSMA [Suspect]
     Active Substance: ONASEMNOGENE ABEPARVOVEC-XIOI
     Indication: SPINAL MUSCULAR ATROPHY
     Dosage: 1.1 ? 10 TO THE 14TH VECTOR GENOMES PER KILOGRAM (VG/KG) OF BODY WEIGHT, ONCE/SINGLE
     Route: 042
     Dates: start: 20200707

REACTIONS (7)
  - Gastrointestinal disorder [Unknown]
  - Hepatic enzyme increased [Recovering/Resolving]
  - Developmental delay [Unknown]
  - Vomiting [Recovered/Resolved]
  - Aspartate aminotransferase increased [Not Recovered/Not Resolved]
  - Alanine aminotransferase increased [Not Recovered/Not Resolved]
  - Pyrexia [Recovered/Resolved]

NARRATIVE: CASE EVENT DATE: 20200710
